FAERS Safety Report 14282227 (Version 1)
Quarter: 2017Q4

REPORT INFORMATION
  Report Type: Spontaneous
  Country: IL (occurrence: IL)
  Receive Date: 20171213
  Receipt Date: 20171213
  Transmission Date: 20180321
  Serious: Yes (Death, Other)
  Sender: FDA-Public Use
  Company Number: IL-JAZZ-2017-IL-016258

PATIENT
  Sex: Male
  Weight: 60 kg

DRUGS (1)
  1. DEFITELIO [Suspect]
     Active Substance: DEFIBROTIDE SODIUM
     Indication: VENOOCCLUSIVE DISEASE
     Dosage: UNK
     Dates: start: 20171128

REACTIONS (2)
  - Blood bilirubin increased [Unknown]
  - Death [Fatal]

NARRATIVE: CASE EVENT DATE: 20171130
